FAERS Safety Report 21662499 (Version 1)
Quarter: 2022Q4

REPORT INFORMATION
  Report Type: Spontaneous
  Country: US (occurrence: US)
  Receive Date: 20221130
  Receipt Date: 20221130
  Transmission Date: 20230112
  Serious: No
  Sender: FDA-Public Use
  Company Number: US-PFIZER INC-202201337675

PATIENT
  Age: 84 Year
  Sex: Male
  Weight: 60.78 kg

DRUGS (2)
  1. VYNDAMAX [Suspect]
     Active Substance: TAFAMIDIS
     Indication: Hereditary disorder
     Dosage: 61 MG, 1X/DAY
     Dates: start: 2020, end: 20221122
  2. VYNDAMAX [Suspect]
     Active Substance: TAFAMIDIS
     Indication: Cardiac disorder

REACTIONS (1)
  - Cardiac disorder [Unknown]
